FAERS Safety Report 12879903 (Version 4)
Quarter: 2017Q1

REPORT INFORMATION
  Report Type: Spontaneous
  Country: US (occurrence: US)
  Receive Date: 20161025
  Receipt Date: 20170206
  Transmission Date: 20170428
  Serious: Yes (Other)
  Sender: FDA-Public Use
  Company Number: US-PFIZER INC-2016490361

PATIENT
  Age: 45 Year
  Sex: Female
  Weight: 82 kg

DRUGS (1)
  1. IBRANCE [Suspect]
     Active Substance: PALBOCICLIB
     Indication: BREAST CANCER
     Dosage: 125 MG, CYCLIC (QD DAYS 1-21 (OF 28 DAY CYCLE))
     Route: 048
     Dates: start: 201610

REACTIONS (4)
  - Expired product administered [Unknown]
  - Nausea [Unknown]
  - Bone pain [Unknown]
  - Leukopenia [Not Recovered/Not Resolved]

NARRATIVE: CASE EVENT DATE: 2016
